FAERS Safety Report 8445187-9 (Version None)
Quarter: 2012Q2

REPORT INFORMATION
  Report Type: 
  Country: None (occurrence: None)
  Receive Date: 20120618
  Receipt Date: 20120605
  Transmission Date: 20120825
  Serious: No
  Sender: FDA-Public Use
  Company Number: US-ASTRAZENECA-2012SE31990

PATIENT
  Age: 62 Year
  Sex: Female

DRUGS (3)
  1. NEXIUM [Suspect]
     Route: 048
  2. SYMBICORT [Suspect]
     Dosage: 160/4.5 MCG, UNKNOWN
     Route: 055
  3. SEROQUEL [Suspect]
     Route: 048

REACTIONS (4)
  - PAIN [None]
  - HIATUS HERNIA [None]
  - INTENTIONAL DRUG MISUSE [None]
  - DYSPEPSIA [None]
